FAERS Safety Report 5673270-X (Version None)
Quarter: 2008Q2

REPORT INFORMATION
  Report Type: 
  Country: None (occurrence: None)
  Receive Date: 20080219
  Receipt Date: 20071114
  Transmission Date: 20081010
  Serious: No
  Sender: FDA-Public Use
  Company Number: TPA2007A02349

PATIENT
  Age: 72 Year
  Sex: Male
  Weight: 72.5755 kg

DRUGS (9)
  1. ROZEREM [Suspect]
     Indication: INSOMNIA
     Dosage: 8 MG, QHS, PER ORAL
     Route: 048
     Dates: start: 20071029, end: 20071030
  2. ASPIRIN [Concomitant]
  3. PROTONIX (PANTOPRAZOLE) (UNKNOWN) [Concomitant]
  4. FLONASE (FLUTICASONE PROPIOATE (NASAL DROPS (INCLUDING NASAL SPRAY)) [Concomitant]
  5. SOTALOL (SOTALOL) (UNKNOWN) [Concomitant]
  6. LIPITOR [Concomitant]
  7. XANAX (ALPRAZOLAM) (UNKNOWN) [Concomitant]
  8. CITALOPRAM HYDROBROMIDE [Concomitant]
  9. ALLEGRA (FEXOFENADINE HYDROCHLORIDE) (UNKNOWN) [Concomitant]

REACTIONS (2)
  - HALLUCINATIONS, MIXED [None]
  - MIDDLE INSOMNIA [None]
